FAERS Safety Report 6615749-X (Version None)
Quarter: 2010Q1

REPORT INFORMATION
  Report Type: 
  Country: None (occurrence: None)
  Receive Date: 20100226
  Receipt Date: 20100215
  Transmission Date: 20100710
  Serious: Yes (Other)
  Sender: FDA-Public Use
  Company Number: 2010SP009567

PATIENT
  Age: 34 Year
  Sex: Female

DRUGS (4)
  1. IMPLANON [Suspect]
     Indication: DRUG USE FOR UNKNOWN INDICATION
     Dosage: 1 DF; SC
     Route: 058
     Dates: start: 20091113
  2. TEGRETOL [Concomitant]
  3. GARDENAL [Concomitant]
  4. PAROXETINE HCL [Concomitant]

REACTIONS (1)
  - CONVULSION [None]
